FAERS Safety Report 17766629 (Version 2)
Quarter: 2020Q2

REPORT INFORMATION
  Report Type: Spontaneous
  Country: US (occurrence: US)
  Receive Date: 20200511
  Receipt Date: 20200529
  Transmission Date: 20200714
  Serious: No
  Sender: FDA-Public Use
  Company Number: US-VERTEX PHARMACEUTICALS-2020-010326

PATIENT
  Age: 15 Year
  Sex: Female

DRUGS (4)
  1. XOPENEX [Concomitant]
     Active Substance: LEVALBUTEROL HYDROCHLORIDE
  2. ALVESCO [Concomitant]
     Active Substance: CICLESONIDE
  3. SYMDEKO [Suspect]
     Active Substance: IVACAFTOR\TEZACAFTOR
     Indication: CYSTIC FIBROSIS
     Dosage: 1 TAB(100 MG TEZACAFTOR AND 150MG IVACFATOR) AM; 1 TAB(150 MG IVACAFTOR) PM
     Route: 048
     Dates: start: 20200430, end: 20200502
  4. PULMOZYME [Concomitant]
     Active Substance: DORNASE ALFA

REACTIONS (6)
  - Rectal fissure [Unknown]
  - Haematochezia [Recovered/Resolved]
  - Large intestine infection [Recovered/Resolved]
  - Constipation [Unknown]
  - Vomiting [Recovered/Resolved]
  - Nausea [Recovered/Resolved]

NARRATIVE: CASE EVENT DATE: 2020
